FAERS Safety Report 4843864-X (Version None)
Quarter: 2005Q4

REPORT INFORMATION
  Report Type: 
  Country: None (occurrence: None)
  Receive Date: 20051130
  Receipt Date: 20051130
  Transmission Date: 20060501
  Serious: Yes (Other)
  Sender: FDA-Public Use
  Company Number: None

PATIENT
  Age: 48 Year
  Sex: Male
  Weight: 58.9676 kg

DRUGS (3)
  1. LAMISIL [Suspect]
     Indication: NAIL DISCOLOURATION
     Dosage: 1 TAB BY MOUTH DAILY
  2. LAMISIL [Suspect]
     Indication: NAIL DISORDER
     Dosage: 1 TAB BY MOUTH DAILY
  3. LAMISIL [Suspect]
     Indication: SKIN DISORDER
     Dosage: 1 TAB BY MOUTH DAILY

REACTIONS (1)
  - DYSGEUSIA [None]
